FAERS Safety Report 6221798-6 (Version None)
Quarter: 2009Q2

REPORT INFORMATION
  Report Type: 
  Country: None (occurrence: None)
  Receive Date: 20090610
  Receipt Date: 20090529
  Transmission Date: 20091009
  Serious: Yes (Death, Life-Threatening)
  Sender: FDA-Public Use
  Company Number: DE-PFIZER INC-2009192857

PATIENT
  Age: 42 Year

DRUGS (3)
  1. ZELDOX [Suspect]
     Indication: SUICIDAL IDEATION
     Dosage: 40 MG, UNK
     Route: 048
     Dates: start: 20081201
  2. ZELDOX [Suspect]
     Indication: ANXIETY
  3. PIPAMPERONE [Concomitant]
     Indication: SLEEP DISORDER

REACTIONS (4)
  - COMPLETED SUICIDE [None]
  - SUICIDAL IDEATION [None]
  - SUICIDE ATTEMPT [None]
  - TACHYCARDIA [None]
